FAERS Safety Report 9869978 (Version 1)
Quarter: 2014Q1

REPORT INFORMATION
  Report Type: Spontaneous
  Country: US (occurrence: US)
  Receive Date: 20140205
  Receipt Date: 20140205
  Transmission Date: 20141002
  Serious: No
  Sender: FDA-Public Use
  Company Number: US-GLAXOSMITHKLINE-A1010404A

PATIENT
  Age: 78 Year
  Sex: Male

DRUGS (3)
  1. VALTREX [Suspect]
     Indication: GENITAL HERPES
     Dosage: 1G TWICE PER DAY
     Route: 048
     Dates: start: 2008
  2. PROCARDIA [Concomitant]
  3. CITRACAL [Concomitant]

REACTIONS (7)
  - Genital herpes [Not Recovered/Not Resolved]
  - Ill-defined disorder [Not Recovered/Not Resolved]
  - Skin discolouration [Not Recovered/Not Resolved]
  - Skin lesion [Not Recovered/Not Resolved]
  - Pain [Not Recovered/Not Resolved]
  - Prescribed overdose [Unknown]
  - Product quality issue [Unknown]
